FAERS Safety Report 18898997 (Version 1)
Quarter: 2021Q1

REPORT INFORMATION
  Report Type: Spontaneous
  Country: AU (occurrence: AU)
  Receive Date: 20210216
  Receipt Date: 20210216
  Transmission Date: 20210420
  Serious: Yes (Death, Other)
  Sender: FDA-Public Use
  Company Number: AU-PFIZER INC-2021152188

PATIENT
  Age: 53 Year
  Sex: Female

DRUGS (1)
  1. CIPROFLOXACIN. [Suspect]
     Active Substance: CIPROFLOXACIN
     Indication: CHOLERA
     Dosage: UNK
     Route: 042

REACTIONS (3)
  - Off label use [Unknown]
  - Acute hepatic failure [Fatal]
  - Multiple organ dysfunction syndrome [Fatal]
